FAERS Safety Report 5744265-2 (Version None)
Quarter: 2008Q2

REPORT INFORMATION
  Report Type: 
  Country: None (occurrence: None)
  Receive Date: 20080520
  Receipt Date: 20080509
  Transmission Date: 20081010
  Serious: Yes (Hospitalization)
  Sender: FDA-Public Use
  Company Number: US-MERCK-0706USA00862

PATIENT
  Age: 55 Year
  Sex: Female
  Weight: 61 kg

DRUGS (2)
  1. FOSAMAX [Suspect]
     Indication: OSTEOPENIA
     Route: 048
     Dates: start: 20030101, end: 20060101
  2. [THERAPY UNSPECIFIED] [Concomitant]
     Indication: BLOOD CHOLESTEROL DECREASED
     Route: 065
     Dates: start: 19960101

REACTIONS (25)
  - BREAST DISORDER [None]
  - BREAST HAEMORRHAGE [None]
  - CHEST PAIN [None]
  - CYSTITIS [None]
  - DENTAL CARIES [None]
  - GASTROOESOPHAGEAL REFLUX DISEASE [None]
  - HAEMANGIOMA OF LIVER [None]
  - HEADACHE [None]
  - HYPERCHOLESTEROLAEMIA [None]
  - HYPERLIPIDAEMIA [None]
  - HYPERTENSION [None]
  - HYPOAESTHESIA [None]
  - HYPOAESTHESIA FACIAL [None]
  - ILEUS [None]
  - JAW DISORDER [None]
  - NAUSEA [None]
  - PAIN IN JAW [None]
  - PARAESTHESIA [None]
  - PERIODONTAL DISEASE [None]
  - RENAL FAILURE ACUTE [None]
  - TRISMUS [None]
  - ULCER [None]
  - URINARY BLADDER RUPTURE [None]
  - URINARY TRACT DISORDER [None]
  - WHITE BLOOD CELL COUNT DECREASED [None]
